FAERS Safety Report 6517772-2 (Version None)
Quarter: 2009Q4

REPORT INFORMATION
  Report Type: 
  Country: None (occurrence: None)
  Receive Date: 20091224
  Receipt Date: 20091222
  Transmission Date: 20100525
  Serious: Yes (Life-Threatening, Hospitalization)
  Sender: FDA-Public Use
  Company Number: DE-ASTRAZENECA-2009SE32805

PATIENT
  Age: 41 Year
  Sex: Male

DRUGS (3)
  1. LISINOPRIL [Suspect]
     Indication: HYPERTENSION
  2. ASPIRIN [Concomitant]
  3. DIETARY SUPPLEMENTS (GARLIC AND CALCIUM) [Concomitant]

REACTIONS (3)
  - ACCIDENTAL EXPOSURE [None]
  - ANGIOEDEMA [None]
  - DRUG DOSE OMISSION [None]
